FAERS Safety Report 25037650 (Version 1)
Quarter: 2025Q1

REPORT INFORMATION
  Report Type: Spontaneous
  Country: DE (occurrence: DE)
  Receive Date: 20250304
  Receipt Date: 20250304
  Transmission Date: 20250408
  Serious: Yes (Other)
  Sender: GLENMARK
  Company Number: DE-GLENMARK PHARMACEUTICALS-2025GMK098220

PATIENT
  Age: 87 Year
  Sex: Male

DRUGS (3)
  1. PRAMIPEXOLE DIHYDROCHLORIDE [Suspect]
     Active Substance: PRAMIPEXOLE DIHYDROCHLORIDE
     Indication: Restless legs syndrome
     Route: 065
  2. PRAMIPEXOLE DIHYDROCHLORIDE [Suspect]
     Active Substance: PRAMIPEXOLE DIHYDROCHLORIDE
     Dosage: HALF A 0.35 MG TABLET TWICE A DAY
     Route: 065
  3. PRAMIPEXOLE DIHYDROCHLORIDE [Suspect]
     Active Substance: PRAMIPEXOLE DIHYDROCHLORIDE
     Route: 065

REACTIONS (7)
  - Drug dependence [Unknown]
  - Ill-defined disorder [Recovering/Resolving]
  - Nausea [Recovering/Resolving]
  - Vomiting [Recovering/Resolving]
  - Product use issue [Unknown]
  - Extra dose administered [Unknown]
  - Therapeutic response shortened [Unknown]
